FAERS Safety Report 9664919 (Version 1)
Quarter: 2013Q4

REPORT INFORMATION
  Report Type: Spontaneous
  Country: KW (occurrence: BG)
  Receive Date: 20131101
  Receipt Date: 20131101
  Transmission Date: 20140711
  Serious: Yes (Hospitalization, Other)
  Sender: FDA-Public Use
  Company Number: KW-ABBVIE-13P-091-1164805-00

PATIENT
  Age: 56 Year
  Sex: Female
  Weight: 87 kg

DRUGS (6)
  1. HUMIRA [Suspect]
     Indication: PSORIASIS
     Route: 058
     Dates: start: 201109
  2. CODIOVAN [Concomitant]
     Indication: DIABETES MELLITUS
     Route: 048
  3. CONCOR [Concomitant]
     Indication: HYPERTENSION
     Route: 048
  4. DIAMICRON MR [Concomitant]
     Indication: DIABETES MELLITUS
     Route: 048
  5. GLUCOPHAGE [Concomitant]
     Indication: DIABETES MELLITUS
     Route: 048
  6. BYDUREON [Concomitant]
     Indication: DIABETES MELLITUS
     Route: 058

REACTIONS (4)
  - Nodule [Unknown]
  - Hypertension [Unknown]
  - Red blood cell sedimentation rate increased [Unknown]
  - Hepatic enzyme increased [Unknown]
